FAERS Safety Report 9395154 (Version 1)
Quarter: 2013Q3

REPORT INFORMATION
  Report Type: Spontaneous
  Country: CA (occurrence: CA)
  Receive Date: 20130711
  Receipt Date: 20130711
  Transmission Date: 20140515
  Serious: Yes (Other)
  Sender: FDA-Public Use
  Company Number: CA-PFIZER INC-2013199164

PATIENT
  Sex: Male

DRUGS (1)
  1. EPIPEN [Suspect]
     Indication: ARTHROPOD STING
     Route: 030

REACTIONS (1)
  - Haemorrhage [Unknown]
